FAERS Safety Report 8251602-6 (Version None)
Quarter: 2012Q2

REPORT INFORMATION
  Report Type: 
  Country: None (occurrence: None)
  Receive Date: 20120402
  Receipt Date: 20120223
  Transmission Date: 20120825
  Serious: No
  Sender: FDA-Public Use
  Company Number: US-ABBOTT-12P-163-0908785-00

PATIENT
  Sex: Male
  Weight: 104.42 kg

DRUGS (9)
  1. BENICAR HCT [Concomitant]
     Indication: HYPERTENSION
  2. CLARITIN [Concomitant]
     Indication: HYPERSENSITIVITY
  3. ANDROGEL [Suspect]
     Indication: BLOOD TESTOSTERONE DECREASED
     Route: 061
     Dates: start: 20120101
  4. ANDROGEL [Suspect]
     Indication: BLOOD TESTOSTERONE DECREASED
     Dates: end: 20120101
  5. PRILOSEC [Concomitant]
     Indication: GASTROOESOPHAGEAL REFLUX DISEASE
  6. VESICARE [Concomitant]
     Indication: POLLAKIURIA
  7. CRESTOR [Concomitant]
     Indication: BLOOD CHOLESTEROL
  8. COREG [Concomitant]
     Indication: HYPERTENSION
  9. ZYRTEC [Concomitant]
     Indication: HYPERSENSITIVITY

REACTIONS (2)
  - EJACULATION FAILURE [None]
  - BLOOD PRESSURE INCREASED [None]
